FAERS Safety Report 17245900 (Version 2)
Quarter: 2020Q1

REPORT INFORMATION
  Report Type: Spontaneous
  Country: FR (occurrence: FR)
  Receive Date: 20200108
  Receipt Date: 20200206
  Transmission Date: 20200409
  Serious: Yes (Death, Hospitalization, Other)
  Sender: FDA-Public Use
  Company Number: FR-ROCHE-2512057

PATIENT
  Age: 68 Year
  Sex: Female
  Weight: 71 kg

DRUGS (2)
  1. TOCILIZUMAB. [Suspect]
     Active Substance: TOCILIZUMAB
     Indication: CYTOKINE RELEASE SYNDROME
     Route: 042
     Dates: start: 20190826
  2. YESCARTA [Suspect]
     Active Substance: AXICABTAGENE CILOLEUCEL
     Indication: DIFFUSE LARGE B-CELL LYMPHOMA
     Dosage: UNK
     Route: 042
     Dates: start: 20190822, end: 20190822

REACTIONS (12)
  - CAR T-cell-related encephalopathy syndrome [Unknown]
  - Scar [Unknown]
  - Hypoxic-ischaemic encephalopathy [Unknown]
  - Escherichia bacteraemia [Unknown]
  - Duodenal ulcer [Unknown]
  - Encephalopathy [Unknown]
  - Fungal infection [Unknown]
  - Gastrointestinal perforation [Unknown]
  - Intestinal ischaemia [Unknown]
  - Cytokine release syndrome [Unknown]
  - Septic shock [Fatal]
  - Cardiac arrest [Fatal]

NARRATIVE: CASE EVENT DATE: 201909
